FAERS Safety Report 4757491-6 (Version None)
Quarter: 2005Q3

REPORT INFORMATION
  Report Type: 
  Country: None (occurrence: None)
  Receive Date: 20050831
  Receipt Date: 20050808
  Transmission Date: 20060218
  Serious: Yes (Death)
  Sender: FDA-Public Use
  Company Number: JP-SANOFI-SYNTHELABO-A01200505622

PATIENT
  Sex: Female
  Weight: 55 kg

DRUGS (3)
  1. OXALIPLATIN [Suspect]
     Indication: COLON CANCER
     Dosage: 120MG/BODY AS INFUSION ON DAY 1
     Route: 042
     Dates: start: 20050713, end: 20050713
  2. FLUOROURACIL [Suspect]
     Indication: COLON CANCER
     Dosage: 560 MG IN BOLUS THEN 840 MG AS CONTINUOUS INFUSION ON DAYS 1+2, Q2W
     Route: 042
     Dates: start: 20050713, end: 20050714
  3. LEVOFOLINATE [Concomitant]
     Dosage: 140MG/BODY AS INFUSION ON DAYS 1 AND 2
     Route: 042
     Dates: start: 20050713, end: 20050714

REACTIONS (4)
  - HAEMOGLOBIN DECREASED [None]
  - LEUKOPENIA [None]
  - SHOCK [None]
  - THROMBOCYTOPENIA [None]
